FAERS Safety Report 9468337 (Version 1)
Quarter: 2013Q3

REPORT INFORMATION
  Report Type: Spontaneous
  Country: US (occurrence: US)
  Receive Date: 20130821
  Receipt Date: 20130821
  Transmission Date: 20140515
  Serious: No
  Sender: FDA-Public Use
  Company Number: US-PFIZER INC-2013240669

PATIENT
  Age: 51 Year
  Sex: Female

DRUGS (2)
  1. XANAX [Suspect]
     Indication: ANXIETY
     Dosage: 0.125 MG, 4X/DAY
     Route: 048
  2. LEXAPRO [Suspect]
     Indication: ANXIETY
     Dosage: 2.5 MG, 1X/DAY
     Dates: start: 20130803

REACTIONS (6)
  - Decreased appetite [Unknown]
  - Anxiety [Not Recovered/Not Resolved]
  - Tremor [Not Recovered/Not Resolved]
  - Dizziness [Unknown]
  - Fatigue [Not Recovered/Not Resolved]
  - Heart rate decreased [Not Recovered/Not Resolved]
